FAERS Safety Report 4406775-X (Version None)
Quarter: 2004Q3

REPORT INFORMATION
  Report Type: 
  Country: None (occurrence: None)
  Receive Date: 20040715
  Receipt Date: 20040701
  Transmission Date: 20050211
  Serious: Yes (Hospitalization)
  Sender: FDA-Public Use
  Company Number: 2004JP001285

PATIENT
  Age: 44 Year
  Sex: Male

DRUGS (1)
  1. PROGRAF [Suspect]
     Indication: BONE MARROW TRANSPLANT

REACTIONS (3)
  - INTESTINAL ISCHAEMIA [None]
  - POST PROCEDURAL COMPLICATION [None]
  - SEPSIS [None]
